FAERS Safety Report 19476077 (Version 1)
Quarter: 2021Q2

REPORT INFORMATION
  Report Type: Spontaneous
  Country: US (occurrence: US)
  Receive Date: 20210630
  Receipt Date: 20210630
  Transmission Date: 20210717
  Serious: Yes (Hospitalization)
  Sender: FDA-Public Use
  Company Number: NVSC2021US146057

PATIENT
  Age: 55 Year
  Sex: Female

DRUGS (4)
  1. RANITIDINE. [Suspect]
     Active Substance: RANITIDINE
     Indication: ABDOMINAL DISCOMFORT
  2. RANITIDINE. [Suspect]
     Active Substance: RANITIDINE
     Indication: DYSPEPSIA
     Dosage: 150 MG, BID
     Route: 048
     Dates: start: 199801, end: 202001
  3. RANITIDINE. [Suspect]
     Active Substance: RANITIDINE
     Indication: DYSPEPSIA
     Dosage: 150 MG, BID
     Route: 048
     Dates: start: 199801, end: 202001
  4. RANITIDINE. [Suspect]
     Active Substance: RANITIDINE
     Indication: ABDOMINAL DISCOMFORT

REACTIONS (1)
  - Breast cancer stage II [Unknown]

NARRATIVE: CASE EVENT DATE: 20190501
